FAERS Safety Report 26040512 (Version 1)
Quarter: 2025Q4

REPORT INFORMATION
  Report Type: Spontaneous
  Country: US (occurrence: None)
  Receive Date: 20251112
  Receipt Date: 20251112
  Transmission Date: 20260118
  Serious: Yes (Other)
  Sender: FDA-CTU
  Company Number: None

PATIENT
  Sex: Female

DRUGS (2)
  1. BOTOX [Suspect]
     Active Substance: ONABOTULINUMTOXINA
     Indication: Product used for unknown indication
     Dosage: OTHER FREQUENCY : EVERY 12 WEEKS;?OTHER ROUTE : INJECTION;?FREQ: INJECT UP TO 200 UNITS IN THE MUSCLE HEAD AND NECK EVERY 12 WEEKS?
     Route: 050
     Dates: start: 20180612
  2. OULIPTA [Concomitant]

REACTIONS (1)
  - Infusion [None]
